FAERS Safety Report 24699501 (Version 2)
Quarter: 2025Q1

REPORT INFORMATION
  Report Type: Report from Study
  Country: US (occurrence: US)
  Receive Date: 20241205
  Receipt Date: 20250101
  Transmission Date: 20250408
  Serious: Yes (Hospitalization, Other)
  Sender: ABBVIE
  Company Number: US-ABBVIE-6030566

PATIENT
  Age: 80 Year
  Sex: Female

DRUGS (1)
  1. RINVOQ [Suspect]
     Active Substance: UPADACITINIB
     Indication: Rheumatoid arthritis
     Dosage: FORM STRENGTH 15 MILLIGRAMS
     Route: 048
     Dates: start: 2022

REACTIONS (7)
  - Ophthalmic herpes zoster [Unknown]
  - Pain [Recovering/Resolving]
  - Asthma [Recovering/Resolving]
  - Bronchitis [Recovering/Resolving]
  - Influenza [Recovering/Resolving]
  - Pneumonia [Recovering/Resolving]
  - Cough [Recovering/Resolving]
